FAERS Safety Report 4715281-4 (Version None)
Quarter: 2005Q3

REPORT INFORMATION
  Report Type: 
  Country: None (occurrence: None)
  Receive Date: 20050715
  Receipt Date: 20050714
  Transmission Date: 20060218
  Serious: Yes (Hospitalization)
  Sender: FDA-Public Use
  Company Number: 2005UW10436

PATIENT
  Sex: Female

DRUGS (1)
  1. LISINOPRIL [Suspect]
     Route: 048

REACTIONS (5)
  - DYSPNOEA [None]
  - OEDEMA MOUTH [None]
  - PNEUMONIA [None]
  - SPEECH DISORDER [None]
  - SWOLLEN TONGUE [None]
